FAERS Safety Report 12599902 (Version 2)
Quarter: 2018Q2

REPORT INFORMATION
  Report Type: Report from Study
  Country: FR (occurrence: FR)
  Receive Date: 20160727
  Receipt Date: 20180515
  Transmission Date: 20180711
  Serious: Yes (Hospitalization, Other)
  Sender: FDA-Public Use
  Company Number: FR-PFIZER INC-2015249911

PATIENT
  Age: 71 Year
  Sex: Male

DRUGS (13)
  1. SORIATANE [Concomitant]
     Active Substance: ACITRETIN
     Dosage: 25 MG, DAILY
     Route: 065
     Dates: start: 20120328, end: 20120404
  2. BETNEVAL [Concomitant]
     Active Substance: BETAMETHASONE VALERATE
     Dosage: UNK, 1X/DAY
     Route: 065
  3. TRIATEC /00116401/ [Concomitant]
     Active Substance: ACETAMINOPHEN\CODEINE PHOSPHATE
     Dosage: 2.5 MG, DAILY
     Route: 065
  4. IMETH [Suspect]
     Active Substance: METHOTREXATE SODIUM
     Dosage: 20 MG, WEEKLY
     Route: 048
     Dates: start: 20120328, end: 20150404
  5. LEVOTHYROX [Concomitant]
     Active Substance: LEVOTHYROXINE
     Dosage: 125 ?G, 1X/DAY (1 TABLET MORNING)
     Route: 065
  6. GLUCOPHAGE [Concomitant]
     Active Substance: METFORMIN HYDROCHLORIDE
     Dosage: 1 DF, 2X/DAY (MORNING AND MIDDAY)
     Route: 065
  7. IMETH [Suspect]
     Active Substance: METHOTREXATE SODIUM
     Indication: PSORIASIS
     Dosage: 20 MG, WEEKLY
     Route: 048
  8. AMAREL [Concomitant]
     Active Substance: GLIMEPIRIDE
     Dosage: 4 MG, 1X/DAY (MORNING)
     Route: 065
  9. ATARAX [Concomitant]
     Active Substance: HYDROXYZINE HYDROCHLORIDE
     Dosage: 25 MG, 1X/DAY (1 TABLET EVENING)
     Route: 065
  10. SPECIAFOLDINE [Concomitant]
     Active Substance: FOLIC ACID
     Dosage: 5 MG, DAILY
     Route: 065
  11. OSTRAM /00183801/ [Concomitant]
     Dosage: 1 DF, UNK
     Route: 065
  12. NOVATREX NOS [Suspect]
     Active Substance: AZITHROMYCIN OR METHOTREXATE SODIUM
     Indication: PSORIASIS
     Dosage: 20 MG, WEEKLY
     Route: 048
     Dates: start: 20120328, end: 20120404
  13. UN-ALFA [Concomitant]
     Active Substance: ALFACALCIDOL
     Dosage: 1 ?G, DAILY
     Route: 065

REACTIONS (10)
  - Alanine aminotransferase increased [Recovered/Resolved]
  - Leukopenia [Recovering/Resolving]
  - Neutropenia [Recovered/Resolved]
  - Dermatitis exfoliative generalised [Recovered/Resolved]
  - Mouth ulceration [Recovered/Resolved]
  - Bone marrow toxicity [Unknown]
  - Aplastic anaemia [Recovering/Resolving]
  - Accidental overdose [Recovered/Resolved]
  - Mucosal erosion [Recovered/Resolved]
  - Blood creatinine increased [Unknown]

NARRATIVE: CASE EVENT DATE: 2012
